FAERS Safety Report 4270869-2 (Version None)
Quarter: 2004Q1

REPORT INFORMATION
  Report Type: 
  Country: None (occurrence: None)
  Receive Date: 20040114
  Receipt Date: 20031212
  Transmission Date: 20041129
  Serious: Yes (Death, Hospitalization, Other)
  Sender: FDA-Public Use
  Company Number: PHBS2003DE14108

PATIENT
  Age: 51 Year
  Sex: Male

DRUGS (3)
  1. CYCLOSPORINE [Suspect]
     Indication: RENAL TRANSPLANT
     Route: 065
     Dates: start: 19951201
  2. AZATHIOPRINE [Suspect]
     Indication: RENAL TRANSPLANT
     Route: 065
  3. METHYLPREDNISOLONE [Suspect]
     Indication: RENAL TRANSPLANT
     Route: 065

REACTIONS (18)
  - ARTHRITIS [None]
  - ASPERGILLOSIS [None]
  - CANDIDA SEROLOGY POSITIVE [None]
  - CATARACT [None]
  - CYTOMEGALOVIRUS INFECTION [None]
  - ENDOPHTHALMITIS [None]
  - EYE INFECTION BACTERIAL [None]
  - EYE PAIN [None]
  - FUNDOSCOPY ABNORMAL [None]
  - HERPES ZOSTER [None]
  - HYPOPYON [None]
  - LACRIMATION INCREASED [None]
  - LUNG INFECTION PSEUDOMONAL [None]
  - ONYCHOMYCOSIS [None]
  - SEPTIC SHOCK [None]
  - VISION BLURRED [None]
  - VISUAL ACUITY REDUCED [None]
  - VITRECTOMY [None]
